FAERS Safety Report 11981718 (Version 1)
Quarter: 2016Q1

REPORT INFORMATION
  Report Type: Spontaneous
  Country: US (occurrence: None)
  Receive Date: 20160129
  Receipt Date: 20160129
  Transmission Date: 20160526
  Serious: Yes (Hospitalization)
  Sender: FDA-Public Use
  Company Number: None

PATIENT
  Age: 4 Year
  Sex: Female
  Weight: 16.3 kg

DRUGS (2)
  1. ARGININE [Concomitant]
     Active Substance: ARGININE
  2. RAVICTI [Suspect]
     Active Substance: GLYCEROL PHENYLBUTYRATE
     Indication: UREA CYCLE ENZYME DEFICIENCY
     Dosage: 5 ML TID PO/PG
     Route: 048
     Dates: start: 20160124, end: 20160127

REACTIONS (3)
  - Overdose [None]
  - Metabolic acidosis [None]
  - Somnolence [None]

NARRATIVE: CASE EVENT DATE: 20160126
